FAERS Safety Report 17302289 (Version 1)
Quarter: 2020Q1

REPORT INFORMATION
  Report Type: Spontaneous
  Country: US (occurrence: US)
  Receive Date: 20200122
  Receipt Date: 20200122
  Transmission Date: 20200409
  Serious: Yes (Hospitalization)
  Sender: FDA-Public Use
  Company Number: US-MYLANLABS-2020M1006876

PATIENT
  Age: 48 Year
  Sex: Female

DRUGS (3)
  1. BIVALIRUDIN. [Concomitant]
     Active Substance: BIVALIRUDIN
  2. FONDAPARINUX [Suspect]
     Active Substance: FONDAPARINUX
     Indication: HEPARIN-INDUCED THROMBOCYTOPENIA
     Dosage: UNK
  3. ALTEPLASE. [Concomitant]
     Active Substance: ALTEPLASE

REACTIONS (3)
  - Off label use [Unknown]
  - Drug ineffective [Unknown]
  - Respiratory distress [Unknown]
